FAERS Safety Report 24617631 (Version 2)
Quarter: 2024Q4

REPORT INFORMATION
  Report Type: Spontaneous
  Country: US (occurrence: US)
  Receive Date: 20241114
  Receipt Date: 20241122
  Transmission Date: 20250115
  Serious: Yes (Other)
  Sender: RANBAXY
  Company Number: US-SUN PHARMACEUTICAL INDUSTRIES LTD-2024R1-478604

PATIENT
  Age: 25 Year
  Sex: Female

DRUGS (1)
  1. MY CHOICE TM [Suspect]
     Active Substance: LEVONORGESTREL
     Indication: Product used for unknown indication
     Dosage: UNK
     Route: 065
     Dates: start: 20241026

REACTIONS (7)
  - Haematuria [Unknown]
  - Abdominal pain lower [Unknown]
  - Muscle spasms [Unknown]
  - Diarrhoea [Unknown]
  - Headache [Unknown]
  - Menstrual disorder [Unknown]
  - Dizziness [Unknown]

NARRATIVE: CASE EVENT DATE: 20241030
